FAERS Safety Report 6935677-X (Version None)
Quarter: 2010Q3

REPORT INFORMATION
  Report Type: 
  Country: None (occurrence: None)
  Receive Date: 20100823
  Receipt Date: 20100818
  Transmission Date: 20110219
  Serious: Yes (Death)
  Sender: FDA-Public Use
  Company Number: JP-JNJFOC-20100806552

PATIENT
  Sex: Male

DRUGS (8)
  1. ITRIZOLE [Suspect]
     Indication: LUNG INFECTION PSEUDOMONAL
     Route: 041
  2. ITRIZOLE [Suspect]
     Route: 041
  3. ITRIZOLE [Suspect]
     Indication: PNEUMONIA STAPHYLOCOCCAL
     Route: 041
  4. ITRIZOLE [Suspect]
     Route: 041
  5. ZOSYN [Suspect]
     Indication: PROPHYLAXIS
     Route: 042
  6. TPN [Suspect]
     Indication: HYPOPHAGIA
     Route: 041
  7. ZANTAC [Concomitant]
     Indication: GASTRITIS HAEMORRHAGIC
     Route: 042
  8. POTASSIUM CHLORIDE [Concomitant]
     Indication: HYPOKALAEMIA
     Route: 041

REACTIONS (2)
  - RENAL IMPAIRMENT [None]
  - RESPIRATORY FAILURE [None]
